FAERS Safety Report 5724022-3 (Version None)
Quarter: 2008Q2

REPORT INFORMATION
  Report Type: 
  Country: None (occurrence: None)
  Receive Date: 20080430
  Receipt Date: 20080424
  Transmission Date: 20081010
  Serious: Yes (Hospitalization)
  Sender: FDA-Public Use
  Company Number: AT-ABBOTT-08P-009-0444798-00

PATIENT
  Sex: Male
  Weight: 90 kg

DRUGS (2)
  1. HUMIRA [Suspect]
     Indication: PSORIASIS
     Dosage: 1 IN 1 DAY / INITIAL DOSE
     Route: 058
     Dates: start: 20080206, end: 20080206
  2. HUMIRA [Suspect]
     Indication: RASH PUSTULAR
     Dosage: PER DAY / EOW / 3 TIMES APPLICATION
     Dates: end: 20080307

REACTIONS (2)
  - EOSINOPHIL COUNT INCREASED [None]
  - EOSINOPHILIA [None]
